FAERS Safety Report 25390224 (Version 1)
Quarter: 2025Q2

REPORT INFORMATION
  Report Type: Spontaneous
  Country: TW (occurrence: TW)
  Receive Date: 20250603
  Receipt Date: 20250603
  Transmission Date: 20250716
  Serious: Yes (Other)
  Sender: PFIZER
  Company Number: TW-PFIZER INC-PV202500064811

PATIENT
  Age: 24 Year
  Sex: Male

DRUGS (1)
  1. XYNTHA [Suspect]
     Active Substance: MOROCTOCOG ALFA
     Indication: Prophylaxis
     Dosage: 1500 IU, 2X/WEEK
     Route: 042

REACTIONS (3)
  - Gingival swelling [Recovered/Resolved]
  - Tooth socket haemorrhage [Recovered/Resolved]
  - Toothache [Recovered/Resolved]
